FAERS Safety Report 6539379-3 (Version None)
Quarter: 2010Q1

REPORT INFORMATION
  Report Type: 
  Country: None (occurrence: None)
  Receive Date: 20100115
  Receipt Date: 20100109
  Transmission Date: 20100710
  Serious: Yes (Other)
  Sender: FDA-Public Use
  Company Number: JP-PFIZER INC-2010004810

PATIENT
  Sex: Male

DRUGS (1)
  1. VIAGRA [Suspect]
     Dosage: 100 MG, UNK
     Route: 048
     Dates: start: 20100109

REACTIONS (2)
  - BLINDNESS [None]
  - VISUAL IMPAIRMENT [None]
